FAERS Safety Report 6499852-3 (Version None)
Quarter: 2009Q4

REPORT INFORMATION
  Report Type: 
  Country: None (occurrence: None)
  Receive Date: 20091214
  Receipt Date: 20091214
  Transmission Date: 20100525
  Serious: Yes (Other)
  Sender: FDA-Public Use
  Company Number: None

PATIENT
  Age: 33 Year
  Sex: Female
  Weight: 58.9676 kg

DRUGS (1)
  1. CIPROFLOXACIN [Suspect]
     Indication: GASTROINTESTINAL INFECTION
     Dosage: 1 TABLET TWICE DAILY PO
     Route: 048
     Dates: start: 20091205, end: 20091210

REACTIONS (5)
  - ANXIETY [None]
  - DEREALISATION [None]
  - HEART RATE INCREASED [None]
  - PARANOIA [None]
  - PYREXIA [None]
